FAERS Safety Report 5141509-5 (Version None)
Quarter: 2006Q4

REPORT INFORMATION
  Report Type: 
  Country: None (occurrence: None)
  Receive Date: 20061030
  Receipt Date: 20061030
  Transmission Date: 20070319
  Serious: Yes (Life-Threatening)
  Sender: FDA-Public Use
  Company Number: None

PATIENT
  Age: 55 Year
  Sex: Male
  Weight: 79.3795 kg

DRUGS (1)
  1. AMBIEN [Suspect]
     Indication: INSOMNIA
     Dosage: 1 BED TIME PO
     Route: 048
     Dates: start: 20060122, end: 20060129

REACTIONS (2)
  - ABNORMAL SLEEP-RELATED EVENT [None]
  - IMPAIRED DRIVING ABILITY [None]
